FAERS Safety Report 8029168-5 (Version None)
Quarter: 2012Q1

REPORT INFORMATION
  Report Type: 
  Country: None (occurrence: None)
  Receive Date: 20120106
  Receipt Date: 20120104
  Transmission Date: 20120608
  Serious: Yes (Death, Other)
  Sender: FDA-Public Use
  Company Number: PHEH2011US04686

PATIENT
  Sex: Female

DRUGS (7)
  1. HYDROCODONE [Suspect]
  2. ZOLOFT [Concomitant]
     Indication: DEPRESSED MOOD
     Dosage: 50 MG, QD
     Route: 048
     Dates: end: 20110901
  3. NEURONTIN [Concomitant]
     Indication: TREMOR
     Dosage: 300 MG, TID
     Route: 048
     Dates: start: 20110701, end: 20110901
  4. XANAX [Concomitant]
     Indication: TREMOR
     Dosage: 2 MG, TID
     Route: 048
     Dates: start: 20110701, end: 20110901
  5. GILENYA [Suspect]
     Indication: MULTIPLE SCLEROSIS
     Dosage: 0.5 MG, QD
     Route: 048
     Dates: start: 20110831
  6. ALPRAZOLAM [Suspect]
  7. VICODIN [Concomitant]
     Indication: PAIN
     Dosage: 5 MG, BID
     Route: 048
     Dates: start: 20110701, end: 20110901

REACTIONS (5)
  - DROWNING [None]
  - PROGRESSIVE RELAPSING MULTIPLE SCLEROSIS [None]
  - ASTHENIA [None]
  - ATRIOVENTRICULAR BLOCK SECOND DEGREE [None]
  - MOBILITY DECREASED [None]
